FAERS Safety Report 7378817-3 (Version None)
Quarter: 2011Q1

REPORT INFORMATION
  Report Type: 
  Country: None (occurrence: None)
  Receive Date: 20110328
  Receipt Date: 20110314
  Transmission Date: 20110831
  Serious: Yes (Hospitalization, Disabling)
  Sender: FDA-Public Use
  Company Number: PHEH2009US18510

PATIENT
  Sex: Male

DRUGS (23)
  1. FLUOXETINE [Concomitant]
     Dosage: 10 MG, QD
  2. FUROSEMIDE [Concomitant]
     Dosage: 40 MG, QD
  3. AMLODIPINE BESYLATE AND BENAZEPRIL HCL [Concomitant]
     Dosage: 5/20 QD
  4. POTASSIUM CHLORIDE [Concomitant]
     Dosage: 10 MG, BID
  5. SPIRIVA [Concomitant]
     Dosage: 2 PUFFS QD
  6. PANTOPRAZOLE SODIUM [Concomitant]
     Dosage: 40MG, OD
     Route: 048
  7. FISH OIL [Concomitant]
     Dosage: 1200 MG, TID
  8. CITALOPRAM HYDROBROMIDE [Concomitant]
     Dosage: 40MG, OD
     Route: 048
  9. ZETIA [Concomitant]
     Dosage: 10 MG, QOD
  10. METANX [Concomitant]
     Dosage: 1 DF, QD
  11. PROTONIX [Concomitant]
     Dosage: 40 MG, QD
  12. CALCIUM WITH VITAMIN D [Concomitant]
     Dosage: 500 MG, QD
  13. SIMVASTATIN [Concomitant]
     Dosage: 40 MG, QOD
  14. KLOR-CON [Concomitant]
     Dosage: 1 DF, BID
     Route: 048
  15. ASPIRIN [Concomitant]
     Dosage: 325 MG, QD
  16. ADVAIR DISKUS 100/50 [Concomitant]
     Dosage: 230/21 QHS
  17. EXTAVIA [Suspect]
     Indication: MULTIPLE SCLEROSIS
     Dosage: 0.25 MG, EVERY OTHER DAY
     Route: 058
     Dates: start: 20091215
  18. PROVIGIL [Concomitant]
     Dosage: 200 MG, BID
  19. LAMOTRIGINE [Concomitant]
     Dosage: 100 MG, BID
  20. TIZANIDINE HYDROCHLORIDE [Concomitant]
     Dosage: 40 MG, QID
  21. ASPIRIN [Concomitant]
     Dosage: 8 MG, OD
     Route: 048
  22. BACLOFEN [Concomitant]
     Dosage: 20 MG, QID
  23. OXYGEN THERAPY [Concomitant]
     Dosage: 20 L

REACTIONS (6)
  - COLITIS [None]
  - INJECTION SITE MASS [None]
  - APPLICATION SITE HAEMATOMA [None]
  - SENSORY DISTURBANCE [None]
  - MUSCULOSKELETAL STIFFNESS [None]
  - INJECTION SITE PAIN [None]
